FAERS Safety Report 20493710 (Version 4)
Quarter: 2022Q3

REPORT INFORMATION
  Report Type: Spontaneous
  Country: JP (occurrence: JP)
  Receive Date: 20220221
  Receipt Date: 20220630
  Transmission Date: 20221027
  Serious: Yes (Other)
  Sender: FDA-Public Use
  Company Number: JP-NOVARTISPH-NVSJ2022JP003217

PATIENT
  Age: 74 Year
  Sex: Male

DRUGS (12)
  1. ENTRESTO [Suspect]
     Active Substance: SACUBITRIL\VALSARTAN
     Indication: Cardiac failure chronic
     Dosage: 100 MG
     Route: 048
     Dates: start: 20211005, end: 20211108
  2. ENTRESTO [Suspect]
     Active Substance: SACUBITRIL\VALSARTAN
     Indication: Left ventricular dysfunction
     Dosage: 200 MG
     Route: 048
     Dates: start: 20211109, end: 20211129
  3. ENTRESTO [Suspect]
     Active Substance: SACUBITRIL\VALSARTAN
     Dosage: 200 MG, BID
     Route: 048
     Dates: start: 20211130, end: 20220208
  4. BISOPROLOL FUMARATE [Concomitant]
     Active Substance: BISOPROLOL FUMARATE
     Indication: Product used for unknown indication
     Dosage: 0.9375MG/DAY
     Route: 048
     Dates: start: 20210713
  5. SPIRONOLACTONE [Concomitant]
     Active Substance: SPIRONOLACTONE
     Indication: Product used for unknown indication
     Dosage: 12.5 MG
     Route: 048
     Dates: start: 20211019
  6. RABEPRAZOLE SODIUM [Concomitant]
     Active Substance: RABEPRAZOLE SODIUM
     Indication: Product used for unknown indication
     Dosage: 10 MG
     Route: 048
  7. EVOCALCET [Concomitant]
     Active Substance: EVOCALCET
     Indication: Product used for unknown indication
     Dosage: 1 MG
     Route: 048
  8. BIXALOMER [Concomitant]
     Active Substance: BIXALOMER
     Indication: Product used for unknown indication
     Dosage: 2250 MG
     Route: 048
  9. PLAVIX [Concomitant]
     Active Substance: CLOPIDOGREL BISULFATE
     Indication: Product used for unknown indication
     Dosage: 75 MG
     Route: 048
  10. ASPIRIN [Concomitant]
     Active Substance: ASPIRIN
     Indication: Product used for unknown indication
     Dosage: 100 MG
     Route: 048
  11. CAMOSTAT MESYLATE [Concomitant]
     Active Substance: CAMOSTAT MESYLATE
     Indication: Product used for unknown indication
     Dosage: 600 MG
     Route: 048
  12. MINOCYCLINE HYDROCHLORIDE [Concomitant]
     Active Substance: MINOCYCLINE HYDROCHLORIDE
     Indication: Product used for unknown indication
     Dosage: 200 MG
     Route: 065
     Dates: start: 20211224, end: 20211228

REACTIONS (8)
  - Hepatic function abnormal [Recovering/Resolving]
  - Physical deconditioning [Recovered/Resolved]
  - Lymphocyte count decreased [Recovering/Resolving]
  - Ascites [Unknown]
  - Biliary dilatation [Unknown]
  - Hepatic cyst [Unknown]
  - Renal cyst [Unknown]
  - Pleural effusion [Unknown]

NARRATIVE: CASE EVENT DATE: 20220201
